FAERS Safety Report 19568347 (Version 2)
Quarter: 2021Q4

REPORT INFORMATION
  Report Type: Spontaneous
  Country: US (occurrence: US)
  Receive Date: 20210715
  Receipt Date: 20211215
  Transmission Date: 20220304
  Serious: Yes (Other)
  Sender: FDA-Public Use
  Company Number: US-AVEO ONCOLOGY-2021-AVEO-US003427

PATIENT

DRUGS (1)
  1. FOTIVDA [Suspect]
     Active Substance: TIVOZANIB HYDROCHLORIDE
     Indication: Renal cell carcinoma
     Dosage: 1.34 MG DAILY FOR 21 DAYS THEN 7 DAYS OFF
     Route: 048
     Dates: start: 20210422

REACTIONS (11)
  - Stent placement [Unknown]
  - Dysphonia [Unknown]
  - Blood pressure increased [Unknown]
  - Fatigue [None]
  - Haemoglobin decreased [Unknown]
  - Amnesia [Unknown]
  - Transient aphasia [None]
  - Dysarthria [None]
  - Disease progression [Unknown]
  - Post procedural haemorrhage [Unknown]
  - Ureteral stent insertion [Unknown]
